FAERS Safety Report 6231102-5 (Version None)
Quarter: 2009Q2

REPORT INFORMATION
  Report Type: 
  Country: None (occurrence: None)
  Receive Date: 20090616
  Receipt Date: 20090608
  Transmission Date: 20091009
  Serious: No
  Sender: FDA-Public Use
  Company Number: US-EISAI INC.-E3810-02684-SPO-US

PATIENT
  Age: 61 Year
  Sex: Male
  Weight: 83 kg

DRUGS (4)
  1. ACIPHEX [Suspect]
     Route: 048
     Dates: start: 20050101
  2. ATACAND [Concomitant]
     Indication: BLOOD PRESSURE
     Dosage: UNKNOWN
     Route: 048
  3. DILANTIN [Concomitant]
     Dosage: UNKNOWN
     Route: 048
     Dates: start: 19690101
  4. PHENOBARBITAL TAB [Concomitant]
     Dosage: UNKNOWN
     Route: 048
     Dates: start: 19690101

REACTIONS (1)
  - BLOOD IRON DECREASED [None]
